FAERS Safety Report 8968836 (Version 1)
Quarter: 2012Q4

REPORT INFORMATION
  Report Type: Spontaneous
  Country: US (occurrence: None)
  Receive Date: 20121214
  Receipt Date: 20121214
  Transmission Date: 20130627
  Serious: Yes (Other)
  Sender: FDA-Public Use
  Company Number: None

PATIENT

DRUGS (1)
  1. MONTELUKAST [Suspect]
     Dosage: 1 tab   every night   po
     Route: 048
     Dates: start: 20121107, end: 20121212

REACTIONS (6)
  - Asthma [None]
  - Product substitution issue [None]
  - Activities of daily living impaired [None]
  - Product quality issue [None]
  - Economic problem [None]
  - No therapeutic response [None]
